FAERS Safety Report 25114220 (Version 1)
Quarter: 2025Q1

REPORT INFORMATION
  Report Type: Spontaneous
  Country: US (occurrence: None)
  Receive Date: 20250321
  Receipt Date: 20250321
  Transmission Date: 20250409
  Serious: No
  Sender: FDA-CTU
  Company Number: None

PATIENT
  Sex: Female

DRUGS (8)
  1. DEVICE [Suspect]
     Active Substance: DEVICE
     Indication: Dermatomyositis
     Dosage: FREQUENCY : DAILY;?
     Route: 058
     Dates: start: 202412
  2. VERZENIO [Concomitant]
     Active Substance: ABEMACICLIB
  3. DIPHENI-YDRAMINE (ALLERGY) [Concomitant]
  4. ACETAMINOPHEN [Concomitant]
     Active Substance: ACETAMINOPHEN
  5. EPINEPHRINE AUTO-INJ [Concomitant]
  6. NORMAL SALINE FLUSH (5ML) [Concomitant]
  7. PRIVIGEN [Suspect]
     Active Substance: HUMAN IMMUNOGLOBULIN G
  8. HEPARIN L/L FLUSH SYR (5ML) [Concomitant]

REACTIONS (3)
  - Device alarm issue [None]
  - Incorrect dose administered by device [None]
  - Device occlusion [None]
